FAERS Safety Report 9767802 (Version 1)
Quarter: 2013Q3

REPORT INFORMATION
  Report Type: Spontaneous
  Country: US (occurrence: None)
  Receive Date: 20130923
  Receipt Date: 20130923
  Transmission Date: 20140515
  Serious: Yes (Death)
  Sender: FDA-Public Use
  Company Number: EUS-2013-00564

PATIENT
  Age: 51 Year
  Sex: Male

DRUGS (6)
  1. ASPARAGINASE (UNSPECIFIED) (ASPARAGINASE) [Suspect]
     Indication: ACUTE LYMPHOCYTIC LEUKAEMIA
     Dosage: (5 IN 1 CYCLICAL)
  2. CYCLOPHOSPHAMIDE(CYCLOPHOSPHAMIDE) (CYCLOPHOSPHAMIDE) [Concomitant]
  3. VINCRISTINE (VINCRISTINE) (VINCRISTINE) [Concomitant]
  4. DOXORUBICIN (DOXORUBICIN) (DOXORUBICIN) [Concomitant]
  5. DEXAMETHASONE (DEXAMETHASONE) (DEXAMETHASONE) [Concomitant]
  6. METHOTREXATE (METHOTREXATE) (METHOTREXATE) [Concomitant]

REACTIONS (8)
  - Leukoencephalopathy [None]
  - Hyperammonaemia [None]
  - Nosocomial infection [None]
  - Pneumonia [None]
  - Alanine aminotransferase increased [None]
  - Aspartate aminotransferase increased [None]
  - Blood lactate dehydrogenase increased [None]
  - Toxicity to various agents [None]
